FAERS Safety Report 23999591 (Version 1)
Quarter: 2024Q2

REPORT INFORMATION
  Report Type: Spontaneous
  Country: US (occurrence: None)
  Receive Date: 20240620
  Receipt Date: 20240620
  Transmission Date: 20240716
  Serious: Yes (Hospitalization)
  Sender: FDA-Public Use
  Company Number: None

PATIENT
  Age: 71 Year
  Sex: Female

DRUGS (2)
  1. HUMIRA [Suspect]
     Active Substance: ADALIMUMAB
     Indication: Rheumatoid arthritis
     Dosage: OTHER FREQUENCY : EVERY 2 WEEKS;?
     Route: 058
     Dates: start: 20220904
  2. HUMIRA [Concomitant]
     Active Substance: ADALIMUMAB
     Dates: start: 20220904

REACTIONS (4)
  - Gastric infection [None]
  - Influenza [None]
  - Back pain [None]
  - Therapy interrupted [None]

NARRATIVE: CASE EVENT DATE: 20240530
